FAERS Safety Report 9982445 (Version 2)
Quarter: 2014Q1

REPORT INFORMATION
  Report Type: Report from Study
  Country: PR (occurrence: PR)
  Receive Date: 20140307
  Receipt Date: 20140307
  Transmission Date: 20141002
  Serious: No
  Sender: FDA-Public Use
  Company Number: PR-ABBVIE-13P-131-1039726-00

PATIENT
  Sex: Female
  Weight: 54.48 kg

DRUGS (14)
  1. HUMIRA [Suspect]
     Indication: PSORIASIS
     Route: 058
     Dates: start: 201208
  2. HUMIRA [Suspect]
     Dates: start: 201302
  3. UNKNOWN MEDICATION [Suspect]
     Indication: HYPERTENSION
  4. UNKNOWN MEDICATION [Concomitant]
     Indication: DEMENTIA ALZHEIMER^S TYPE
     Route: 048
  5. KLONOPIN [Concomitant]
     Indication: ANXIETY
     Route: 048
  6. METOPROLOL [Concomitant]
     Indication: HYPERTENSION
     Route: 048
  7. EVISTA [Concomitant]
     Indication: OSTEOPOROSIS
     Route: 048
  8. METOFORMIN [Concomitant]
     Indication: DIABETES MELLITUS
     Route: 048
  9. METFORMIN [Concomitant]
     Indication: DIABETES MELLITUS
     Route: 048
  10. METFORMIN [Concomitant]
     Indication: GASTRIC DISORDER
     Route: 048
  11. METROSOLE [Concomitant]
     Indication: PRODUCT USED FOR UNKNOWN INDICATION
     Route: 048
  12. RESTORIL [Concomitant]
     Indication: INSOMNIA
     Route: 048
  13. LOSARTAN [Concomitant]
     Indication: HYPERTENSION
     Route: 048
  14. CYMBALTA [Concomitant]
     Indication: DEPRESSION
     Route: 048

REACTIONS (5)
  - Swelling face [Recovered/Resolved]
  - Hypersensitivity [Recovered/Resolved]
  - Pruritus [Recovered/Resolved]
  - Swelling [Unknown]
  - Erythema [Unknown]
